FAERS Safety Report 10439412 (Version 1)
Quarter: 2014Q3

REPORT INFORMATION
  Report Type: Spontaneous
  Country: US (occurrence: US)
  Receive Date: 20140908
  Receipt Date: 20140908
  Transmission Date: 20150326
  Serious: Yes (Hospitalization, Other)
  Sender: FDA-Public Use
  Company Number: US-ELI_LILLY_AND_COMPANY-US201408010571

PATIENT
  Sex: Female

DRUGS (2)
  1. INSULIN HUMAN [Suspect]
     Active Substance: INSULIN HUMAN
     Indication: DIABETES MELLITUS
     Dosage: UNK UNK, PRN
     Route: 065
     Dates: start: 2002
  2. HUMULIN 70/30 [Suspect]
     Active Substance: INSULIN HUMAN
     Indication: DIABETES MELLITUS
     Dosage: UNK UNK, TID
     Route: 065
     Dates: start: 2002

REACTIONS (9)
  - Vision blurred [Unknown]
  - Underdose [Not Recovered/Not Resolved]
  - Chest pain [Not Recovered/Not Resolved]
  - Hearing impaired [Unknown]
  - Cardiac failure [Unknown]
  - Gait disturbance [Unknown]
  - Cold sweat [Unknown]
  - Psoriasis [Unknown]
  - Blood glucose increased [Unknown]

NARRATIVE: CASE EVENT DATE: 20140824
